FAERS Safety Report 16864165 (Version 3)
Quarter: 2020Q1

REPORT INFORMATION
  Report Type: Report from Study
  Country: US (occurrence: US)
  Receive Date: 20190927
  Receipt Date: 20200122
  Transmission Date: 20200409
  Serious: No
  Sender: FDA-Public Use
  Company Number: PHEH2019US039643

PATIENT
  Age: 47 Year
  Sex: Male

DRUGS (1)
  1. GILENYA [Suspect]
     Active Substance: FINGOLIMOD HYDROCHLORIDE
     Indication: RELAPSING MULTIPLE SCLEROSIS
     Dosage: 0.5 MG, QD
     Route: 048
     Dates: start: 20190820

REACTIONS (9)
  - Malaise [Unknown]
  - Gait disturbance [Unknown]
  - Nausea [Unknown]
  - Nasopharyngitis [Unknown]
  - Depressed mood [Unknown]
  - Photosensitivity reaction [Unknown]
  - Fatigue [Unknown]
  - Therapeutic response unexpected [Unknown]
  - Headache [Unknown]

NARRATIVE: CASE EVENT DATE: 20191224
